FAERS Safety Report 24154028 (Version 1)
Quarter: 2024Q3

REPORT INFORMATION
  Report Type: Spontaneous
  Country: US (occurrence: US)
  Receive Date: 20240730
  Receipt Date: 20240730
  Transmission Date: 20241017
  Serious: No
  Sender: PURDUE
  Company Number: US-PURDUE-USA-2024-0311017

PATIENT

DRUGS (1)
  1. ACETAMINOPHEN\OXYCODONE HYDROCHLORIDE [Suspect]
     Active Substance: ACETAMINOPHEN\OXYCODONE HYDROCHLORIDE
     Indication: Pain management
     Dosage: UNKNOWN
     Route: 048

REACTIONS (9)
  - Sitting disability [Unknown]
  - Sleep disorder [Unknown]
  - Gait disturbance [Unknown]
  - Quality of life decreased [Unknown]
  - Depression [Unknown]
  - Feeling abnormal [Unknown]
  - Inadequate analgesia [Unknown]
  - Product substitution issue [Unknown]
  - Therapeutic response decreased [Unknown]
